FAERS Safety Report 9685904 (Version 7)
Quarter: 2014Q3

REPORT INFORMATION
  Report Type: Report from Study
  Country: US (occurrence: US)
  Receive Date: 20131113
  Receipt Date: 20140703
  Transmission Date: 20150326
  Serious: Yes (Hospitalization, Other)
  Sender: FDA-Public Use
  Company Number: US-ROCHE-1302699

PATIENT
  Age: 30 Day
  Sex: Female
  Weight: 7.2 kg

DRUGS (2)
  1. OMALIZUMAB [Suspect]
     Active Substance: OMALIZUMAB
     Indication: PRODUCT USED FOR UNKNOWN INDICATION
     Dosage: DATE OF LAST DOSE PRIOR TO THE EVENT: 27/JUL/2012
     Route: 064
     Dates: start: 20120617, end: 20120720
  2. OMALIZUMAB [Suspect]
     Active Substance: OMALIZUMAB
     Route: 064
     Dates: start: 20120727

REACTIONS (16)
  - Pyrexia [Unknown]
  - Conjunctivitis [Unknown]
  - Ear infection [Unknown]
  - Eczema [Unknown]
  - Foetal exposure during pregnancy [Unknown]
  - Gastrooesophageal reflux disease [Recovered/Resolved]
  - Dermatitis diaper [Unknown]
  - Nasal congestion [Unknown]
  - Supraventricular tachycardia [Recovered/Resolved]
  - Wheezing [Recovered/Resolved]
  - Upper respiratory tract infection [Unknown]
  - Bronchiolitis [Recovered/Resolved]
  - Urinary tract infection [Unknown]
  - Nasopharyngitis [Unknown]
  - Croup infectious [Unknown]
  - Dacryostenosis acquired [Unknown]

NARRATIVE: CASE EVENT DATE: 20130509
